APPROVED DRUG PRODUCT: ESTRADIOL AND NORETHINDRONE ACETATE
Active Ingredient: ESTRADIOL; NORETHINDRONE ACETATE
Strength: 1MG;0.5MG
Dosage Form/Route: TABLET;ORAL
Application: A210612 | Product #002 | TE Code: AB
Applicant: NOVAST LABORATORIES LTD
Approved: Apr 3, 2019 | RLD: No | RS: No | Type: RX